FAERS Safety Report 5701574-0 (Version None)
Quarter: 2008Q2

REPORT INFORMATION
  Report Type: 
  Country: None (occurrence: None)
  Receive Date: 20080408
  Receipt Date: 20080326
  Transmission Date: 20081010
  Serious: Yes (Other)
  Sender: FDA-Public Use
  Company Number: 232923J08USA

PATIENT
  Age: 39 Year
  Sex: Female

DRUGS (2)
  1. REBIF [Suspect]
     Indication: MULTIPLE SCLEROSIS
     Dosage: 44 MCG, 3 IN 1 WEEKS, SUBCUTANEOUS
     Route: 058
     Dates: start: 20070918
  2. UNSPECIFIED SLEEP MEDICATION (HYPNOTICS AND SEDATIVES) [Concomitant]

REACTIONS (3)
  - ANKLE FRACTURE [None]
  - FALL [None]
  - SOMNAMBULISM [None]
